FAERS Safety Report 5534204-1 (Version None)
Quarter: 2007Q4

REPORT INFORMATION
  Report Type: 
  Country: None (occurrence: None)
  Receive Date: 20071205
  Receipt Date: 20071107
  Transmission Date: 20080405
  Serious: No
  Sender: FDA-Public Use
  Company Number: US-BOEHRINGER INGELHEIM PHARMACEUTICALS, INC.-2007-BP-24161BP

PATIENT
  Age: 75 Year
  Sex: Female

DRUGS (8)
  1. MICARDIS HCT [Suspect]
     Indication: HYPERTENSION
     Dosage: 80 MG/25MG - T TABLET DAILY
     Route: 048
  2. MICARDIS [Suspect]
     Indication: HYPERTENSION
     Dates: start: 20071003
  3. FUROSEMIDE TABLETS USP, 40 MG [Suspect]
     Indication: HYPERTENSION
     Dates: start: 20071003
  4. MINOXIDIL [Suspect]
     Indication: HYPERTENSION
     Dates: start: 20071003
  5. SPIRONOLACTONE [Suspect]
     Indication: HYPERTENSION
     Dates: start: 20071003
  6. SYNTHROID [Concomitant]
     Indication: HYPOTHYROIDISM
  7. TYLENOL [Concomitant]
     Indication: ARTHRITIS
  8. TOPROL-XL [Concomitant]

REACTIONS (3)
  - BLOOD PRESSURE INCREASED [None]
  - DRUG INEFFECTIVE [None]
  - MALAISE [None]
